FAERS Safety Report 5594214-5 (Version None)
Quarter: 2008Q1

REPORT INFORMATION
  Report Type: 
  Country: None (occurrence: None)
  Receive Date: 20080115
  Receipt Date: 20080110
  Transmission Date: 20080703
  Serious: Yes (Death)
  Sender: FDA-Public Use
  Company Number: 083-C5013-08010591

PATIENT
  Age: 47 Year
  Sex: Male
  Weight: 69 kg

DRUGS (6)
  1. CC-5013 (LENALIDOMIDE) (CAPSULES) [Suspect]
     Indication: MULTIPLE MYELOMA
     Dosage: 25 MG, DAILY, ORAL
     Route: 048
     Dates: start: 20071124, end: 20080107
  2. DEXAMETHASONE TAB [Concomitant]
  3. ASPIRIN [Concomitant]
  4. RABEPRAZOLE SODIUM [Concomitant]
  5. EPOEITEN BETA (EPOETIN BETA) [Concomitant]
  6. LEVOFLOXACIN [Concomitant]

REACTIONS (5)
  - ABDOMINAL PAIN [None]
  - ALANINE AMINOTRANSFERASE INCREASED [None]
  - CARDIOVASCULAR DISORDER [None]
  - HYPOTENSION [None]
  - RESUSCITATION [None]
